FAERS Safety Report 6896273-6 (Version None)
Quarter: 2010Q3

REPORT INFORMATION
  Report Type: 
  Country: None (occurrence: None)
  Receive Date: 20100802
  Receipt Date: 20100726
  Transmission Date: 20110219
  Serious: Yes (Hospitalization)
  Sender: FDA-Public Use
  Company Number: B0666943A

PATIENT
  Sex: Female

DRUGS (7)
  1. LAMICTAL [Suspect]
     Indication: BIPOLAR DISORDER
     Route: 048
     Dates: start: 20090601, end: 20091026
  2. FLAGYL [Concomitant]
     Indication: CLOSTRIDIUM DIFFICILE COLITIS
     Route: 048
     Dates: start: 20091023, end: 20091104
  3. CIFLOX [Concomitant]
     Indication: CLOSTRIDIUM DIFFICILE COLITIS
     Route: 048
     Dates: start: 20091023, end: 20091104
  4. PLAQUENIL [Concomitant]
     Route: 048
  5. VANCOMYCIN HCL [Concomitant]
     Route: 048
     Dates: start: 20091028, end: 20091104
  6. ROCEPHIN [Concomitant]
     Route: 048
     Dates: start: 20091028, end: 20091104
  7. PIPERACILLIN AND TAZOBACTAM [Concomitant]
     Dates: start: 20091104, end: 20091107

REACTIONS (6)
  - DRUG RASH WITH EOSINOPHILIA AND SYSTEMIC SYMPTOMS [None]
  - EOSINOPHILIA [None]
  - HEPATOCELLULAR INJURY [None]
  - PRURITUS [None]
  - PYREXIA [None]
  - RASH MORBILLIFORM [None]
